FAERS Safety Report 15753979 (Version 1)
Quarter: 2018Q4

REPORT INFORMATION
  Report Type: Spontaneous
  Country: IT (occurrence: IT)
  Receive Date: 20181222
  Receipt Date: 20181222
  Transmission Date: 20190205
  Serious: Yes (Hospitalization)
  Sender: FDA-Public Use
  Company Number: IT-MYLANLABS-2018M1095138

PATIENT
  Age: 58 Year
  Sex: Female

DRUGS (1)
  1. CITALOPRAM [Suspect]
     Active Substance: CITALOPRAM HYDROBROMIDE
     Indication: DEPRESSION
     Dosage: 7 MILLILITER, TOTAL
     Route: 048
     Dates: start: 20180104, end: 20180104

REACTIONS (3)
  - Disorientation [Unknown]
  - Agitation [Unknown]
  - Overdose [Unknown]

NARRATIVE: CASE EVENT DATE: 20180104
